FAERS Safety Report 7072234-1 (Version None)
Quarter: 2010Q4

REPORT INFORMATION
  Report Type: 
  Country: None (occurrence: None)
  Receive Date: 20101029
  Receipt Date: 20100125
  Transmission Date: 20110411
  Serious: No
  Sender: FDA-Public Use
  Company Number: A0836731A

PATIENT
  Age: 68 Year
  Sex: Female

DRUGS (10)
  1. ADVAIR DISKUS 100/50 [Suspect]
     Indication: ASTHMA
     Dosage: 1PUFF TWICE PER DAY
     Route: 055
     Dates: start: 20040101
  2. HYDROCHLOROTHIAZIDE [Concomitant]
  3. QUINAPRIL [Concomitant]
  4. DETROL [Concomitant]
  5. SIMVASTATIN [Concomitant]
  6. LORATADINE [Concomitant]
  7. DAILY MULTIVITAMIN [Concomitant]
  8. FISH OIL [Concomitant]
  9. CO Q 10 [Concomitant]
  10. ASPIRIN [Concomitant]

REACTIONS (3)
  - DRUG INEFFECTIVE [None]
  - DYSPNOEA [None]
  - PRODUCT QUALITY ISSUE [None]
